FAERS Safety Report 17210896 (Version 2)
Quarter: 2020Q1

REPORT INFORMATION
  Report Type: Spontaneous
  Country: US (occurrence: US)
  Receive Date: 20191227
  Receipt Date: 20200108
  Transmission Date: 20200409
  Serious: Yes (Other)
  Sender: FDA-Public Use
  Company Number: US-MALLINCKRODT-T201902766

PATIENT
  Age: 57 Year
  Sex: Female

DRUGS (2)
  1. H.P. ACTHAR [Suspect]
     Active Substance: CORTICOTROPIN
     Indication: RHEUMATOID ARTHRITIS
  2. H.P. ACTHAR [Suspect]
     Active Substance: CORTICOTROPIN
     Indication: POLYMYOSITIS
     Dosage: 80 UNITS, TWO TIMES A WEEK AS DIRECTED
     Route: 058
     Dates: start: 201807, end: 201907

REACTIONS (5)
  - Acne [Unknown]
  - Condition aggravated [Unknown]
  - Headache [Unknown]
  - Spinal fusion surgery [Unknown]
  - Hypertension [Unknown]

NARRATIVE: CASE EVENT DATE: 201912
